FAERS Safety Report 5999294-0 (Version None)
Quarter: 2008Q4

REPORT INFORMATION
  Report Type: 
  Country: None (occurrence: None)
  Receive Date: 20081215
  Receipt Date: 20081205
  Transmission Date: 20090506
  Serious: Yes (Other)
  Sender: FDA-Public Use
  Company Number: JP-BRISTOL-MYERS SQUIBB COMPANY-14441380

PATIENT
  Sex: Female

DRUGS (1)
  1. ABILIFY [Suspect]
     Dosage: STRENGTH:6MG UNK-UNK:3MG BID UNK-UNK:6MG BID UNK-UNK:30MG/D UNK-UNK:6MG/BID
     Route: 048

REACTIONS (2)
  - CONFUSIONAL STATE [None]
  - PSYCHIATRIC SYMPTOM [None]
